FAERS Safety Report 11010544 (Version 3)
Quarter: 2018Q2

REPORT INFORMATION
  Report Type: Report from Study
  Country: US (occurrence: US)
  Receive Date: 20150410
  Receipt Date: 20180622
  Transmission Date: 20180711
  Serious: No
  Sender: FDA-Public Use
  Company Number: US-SA-2014SA150886

PATIENT
  Age: 44 Year
  Sex: Female
  Weight: 74.8 kg

DRUGS (10)
  1. TERIFLUNOMIDE [Suspect]
     Active Substance: TERIFLUNOMIDE
     Indication: MULTIPLE SCLEROSIS
     Dosage: 14 MG,QD
     Route: 048
     Dates: start: 20140718
  2. LEVOTHYROXINE. [Concomitant]
     Active Substance: LEVOTHYROXINE
     Indication: HYPOTHYROIDISM
     Dosage: 125 UG,QD
     Dates: start: 198808
  3. LIORESAL [Concomitant]
     Active Substance: BACLOFEN
     Indication: MULTIPLE SCLEROSIS
     Dosage: 180 MG,QD
     Dates: start: 201104
  4. PROVIGIL [MODAFINIL] [Concomitant]
     Indication: MULTIPLE SCLEROSIS
     Dosage: 200 MG,QD
     Dates: start: 200206
  5. AMPYRA [Concomitant]
     Active Substance: DALFAMPRIDINE
     Indication: MULTIPLE SCLEROSIS
     Dosage: 10 MG,BID
     Dates: start: 201104
  6. TERIFLUNOMIDE [Suspect]
     Active Substance: TERIFLUNOMIDE
     Dosage: 14 UNK
     Route: 048
     Dates: start: 20180309
  7. DETROL [Concomitant]
     Active Substance: TOLTERODINE TARTRATE
     Indication: MULTIPLE SCLEROSIS
     Dosage: 4 MG,QD
     Dates: start: 200506
  8. CITALOPRAM [Concomitant]
     Active Substance: CITALOPRAM HYDROBROMIDE
     Indication: MULTIPLE SCLEROSIS
     Dosage: 20 MG,QD
     Dates: start: 201012
  9. DIAZEPAM. [Concomitant]
     Active Substance: DIAZEPAM
     Indication: MULTIPLE SCLEROSIS
     Dosage: 2 MG,TID
     Dates: start: 200206
  10. ACETYLSALICYLIC ACID [Concomitant]
     Active Substance: ASPIRIN
     Indication: DEEP VEIN THROMBOSIS
     Dosage: 81 MG,QD
     Dates: start: 200207

REACTIONS (3)
  - Alopecia [Recovered/Resolved]
  - Product packaging issue [Unknown]
  - Fatigue [Not Recovered/Not Resolved]

NARRATIVE: CASE EVENT DATE: 20140801
